FAERS Safety Report 9470699 (Version 1)
Quarter: 2013Q3

REPORT INFORMATION
  Report Type: Spontaneous
  Country: US (occurrence: None)
  Receive Date: 20130820
  Receipt Date: 20130820
  Transmission Date: 20140515
  Serious: Yes (Hospitalization, Other)
  Sender: FDA-Public Use
  Company Number: None

PATIENT
  Age: 68 Year
  Sex: Male
  Weight: 67.13 kg

DRUGS (3)
  1. BACLOFEN [Suspect]
     Indication: MUSCLE SPASMS
     Route: 048
     Dates: start: 20130603, end: 20130626
  2. LATANOPROST EYE DROPS [Concomitant]
  3. ALIVE VITAMINS 50 PLUS NATURES WAY [Concomitant]

REACTIONS (5)
  - Hallucination [None]
  - Screaming [None]
  - Hypoaesthesia [None]
  - Paraesthesia [None]
  - Transient ischaemic attack [None]
